FAERS Safety Report 14160495 (Version 1)
Quarter: 2017Q4

REPORT INFORMATION
  Report Type: Spontaneous
  Country: SE (occurrence: SE)
  Receive Date: 20171104
  Receipt Date: 20171104
  Transmission Date: 20180321
  Serious: Yes (Other)
  Sender: FDA-Public Use
  Company Number: SE-CONCORDIA PHARMACEUTICALS INC.-GSH201710-006103

PATIENT
  Sex: Female

DRUGS (1)
  1. PREDNISOLONE 5MG [Suspect]
     Active Substance: PREDNISOLONE

REACTIONS (9)
  - Fatigue [Unknown]
  - Depressed mood [Unknown]
  - Hyperhidrosis [Unknown]
  - Bradyphrenia [Unknown]
  - Vision blurred [Unknown]
  - Musculoskeletal disorder [Unknown]
  - Aphasia [Unknown]
  - Palpitations [Unknown]
  - Visual impairment [Unknown]
